FAERS Safety Report 6986482-X (Version None)
Quarter: 2010Q3

REPORT INFORMATION
  Report Type: 
  Country: None (occurrence: None)
  Receive Date: 20100915
  Receipt Date: 20090707
  Transmission Date: 20110219
  Serious: No
  Sender: FDA-Public Use
  Company Number: US-WYE-H10074009

PATIENT
  Sex: Male
  Weight: 74.91 kg

DRUGS (3)
  1. PRISTIQ [Suspect]
     Indication: DEPRESSION
     Route: 048
     Dates: start: 20080501
  2. ETHANOL [Suspect]
     Dosage: 4-5 BEERS EVERY DAY, 6-7 ON THE WEEKEND
     Route: 048
  3. VITAMIN TAB [Concomitant]

REACTIONS (2)
  - APATHY [None]
  - ASTHENIA [None]
